FAERS Safety Report 8116395 (Version 4)
Quarter: 2013Q1

REPORT INFORMATION
  Report Type: Report from Study
  Country: FR (occurrence: FR)
  Receive Date: 20110901
  Receipt Date: 20130329
  Transmission Date: 20140127
  Serious: Yes (Hospitalization, Other)
  Sender: FDA-Public Use
  Company Number: FR-ASTELLAS-2011EU005810

PATIENT
  Sex: Female

DRUGS (3)
  1. PROGRAF [Suspect]
     Indication: RENAL TRANSPLANT
     Dosage: 5 MG, UNKNOWN/D
     Route: 048
     Dates: start: 20070606, end: 20110818
  2. PROGRAF [Suspect]
     Indication: LIVER TRANSPLANT
  3. TACROLIMUS [Suspect]
     Dosage: UNK
     Route: 065

REACTIONS (3)
  - Vesicoureteric reflux [Unknown]
  - Pyelonephritis [Unknown]
  - Vesicoureteral reflux surgery [Recovered/Resolved]
